FAERS Safety Report 6455835-0 (Version None)
Quarter: 2009Q4

REPORT INFORMATION
  Report Type: 
  Country: None (occurrence: None)
  Receive Date: 20091125
  Receipt Date: 20090828
  Transmission Date: 20100525
  Serious: No
  Sender: FDA-Public Use
  Company Number: US-ABBOTT-09P-163-0594691-00

PATIENT
  Sex: Male
  Weight: 83.082 kg

DRUGS (3)
  1. SIMCOR [Suspect]
     Indication: BLOOD CHOLESTEROL INCREASED
     Dosage: 500/20
     Dates: start: 20090701, end: 20090828
  2. GLIPIZIDE [Concomitant]
     Indication: BLOOD GLUCOSE
  3. ENALAPRIL MALEATE [Concomitant]
     Indication: BLOOD PRESSURE

REACTIONS (3)
  - BLOOD GLUCOSE INCREASED [None]
  - ERYTHEMA [None]
  - SKIN BURNING SENSATION [None]
